FAERS Safety Report 5593913-9 (Version None)
Quarter: 2007Q4

REPORT INFORMATION
  Report Type: 
  Country: None (occurrence: None)
  Receive Date: 20071218
  Receipt Date: 20070315
  Transmission Date: 20080405
  Serious: Yes (Other)
  Sender: FDA-Public Use
  Company Number: 2007020944

PATIENT
  Sex: Male
  Weight: 125.6 kg

DRUGS (2)
  1. BEXTRA [Suspect]
     Indication: PAIN
     Dates: start: 20010101, end: 20030101
  2. VIOXX [Concomitant]

REACTIONS (3)
  - DEPRESSION [None]
  - EMOTIONAL DISTRESS [None]
  - MYOCARDIAL INFARCTION [None]
